FAERS Safety Report 8337889-X (Version None)
Quarter: 2012Q2

REPORT INFORMATION
  Report Type: 
  Country: None (occurrence: None)
  Receive Date: 20120504
  Receipt Date: 20120424
  Transmission Date: 20120825
  Serious: Yes (Hospitalization)
  Sender: FDA-Public Use
  Company Number: US-ELI_LILLY_AND_COMPANY-US201204008789

PATIENT
  Sex: Male

DRUGS (9)
  1. BETA BLOCKING AGENTS [Concomitant]
     Indication: BLOOD PRESSURE
  2. PROTONIX [Concomitant]
     Dosage: 40 MG, QD
  3. CARDIZEM [Concomitant]
     Indication: BLOOD PRESSURE
     Dosage: 120 MG, UNK
  4. MULTI-VITAMINS [Concomitant]
  5. LOVAZA [Concomitant]
  6. PREDNISONE TAB [Concomitant]
     Dosage: 5 MG, QD
  7. CALCIUM CITRATE WITH VITAMIN D [Concomitant]
     Dosage: UNK, QD
  8. FORTEO [Suspect]
     Indication: OSTEOPOROSIS
     Dosage: 20 UG, QD
     Dates: start: 20120201
  9. CO Q-10 [Concomitant]

REACTIONS (3)
  - INCORRECT STORAGE OF DRUG [None]
  - ULCER [None]
  - MALAISE [None]
